FAERS Safety Report 25885749 (Version 2)
Quarter: 2025Q4

REPORT INFORMATION
  Report Type: Spontaneous
  Country: EU (occurrence: EU)
  Receive Date: 20251006
  Receipt Date: 20251007
  Transmission Date: 20260117
  Serious: Yes (Death, Other)
  Sender: PFIZER
  Company Number: EU-PFIZER INC-202500196051

PATIENT
  Sex: Female

DRUGS (4)
  1. IBRANCE [Suspect]
     Active Substance: PALBOCICLIB
     Indication: Breast cancer female
     Dosage: UNK
     Dates: start: 20240625
  2. FULVESTRANT [Suspect]
     Active Substance: FULVESTRANT
     Indication: Breast cancer female
     Dosage: UNK
     Dates: start: 20240625
  3. ACETAMINOPHEN\TRAMADOL [Suspect]
     Active Substance: ACETAMINOPHEN\TRAMADOL
     Dosage: UNK
     Dates: start: 20240625
  4. FENTANYL [Suspect]
     Active Substance: FENTANYL
     Dosage: 125 UG (25MCG + 100MCG), AS NEEDED
     Route: 060
     Dates: start: 20240719

REACTIONS (1)
  - Death [Fatal]

NARRATIVE: CASE EVENT DATE: 20240906
